FAERS Safety Report 14847518 (Version 1)
Quarter: 2018Q2

REPORT INFORMATION
  Report Type: Spontaneous
  Country: DE (occurrence: DE)
  Receive Date: 20180504
  Receipt Date: 20180504
  Transmission Date: 20180711
  Serious: Yes (Other)
  Sender: FDA-Public Use
  Company Number: DE-AUROBINDO-AUR-APL-2018-023754

PATIENT
  Age: 1 Day
  Sex: Female
  Weight: 2.53 kg

DRUGS (1)
  1. ARIPIPRAZOLE. [Suspect]
     Active Substance: ARIPIPRAZOLE
     Indication: SCHIZOPHRENIA
     Dosage: UNK (TRIMESTER: LONG TERM EXPOSURE)
     Route: 064

REACTIONS (4)
  - Dysmorphism [Unknown]
  - Selective eating disorder [Recovered/Resolved]
  - Neonatal respiratory distress [Recovered/Resolved]
  - Hypotonia neonatal [Recovered/Resolved]

NARRATIVE: CASE EVENT DATE: 20171221
